FAERS Safety Report 8815599 (Version 1)
Quarter: 2012Q4

REPORT INFORMATION
  Report Type: 
  Country: US (occurrence: US)
  Receive Date: 20120928
  Receipt Date: 20120928
  Transmission Date: 20130627
  Serious: Yes (Other)
  Sender: FDA-Public Use
  Company Number: US-BRISTOL-MYERS SQUIBB COMPANY-16938326

PATIENT
  Age: 5 None
  Sex: Female

DRUGS (3)
  1. ABILIFY TABS [Suspect]
     Indication: DEPRESSION
     Dosage: 1DF=1/8 of a 2 mg tab.Intial dose-2mg,for many years
     Dates: end: 2012
  2. ABILIFY TABS [Suspect]
     Indication: MENOPAUSAL DEPRESSION
     Dosage: 1DF=1/8 of a 2 mg tab.Intial dose-2mg,for many years
     Dates: end: 2012
  3. EFFEXOR [Concomitant]

REACTIONS (3)
  - Parkinson^s disease [Unknown]
  - Withdrawal syndrome [Unknown]
  - Weight decreased [Unknown]
